FAERS Safety Report 15945038 (Version 2)
Quarter: 2019Q4

REPORT INFORMATION
  Report Type: Report from Study
  Country: US (occurrence: US)
  Receive Date: 20190211
  Receipt Date: 20191024
  Transmission Date: 20200122
  Serious: Yes (Hospitalization)
  Sender: FDA-Public Use
  Company Number: US-SA-2018SA276244

PATIENT
  Age: 74 Year
  Sex: Female

DRUGS (1)
  1. INSULIN GLARGINE [Suspect]
     Active Substance: INSULIN GLARGINE
     Indication: TYPE 2 DIABETES MELLITUS
     Dosage: 60 U, QD NIGHT
     Route: 058

REACTIONS (5)
  - Nasopharyngitis [Recovered/Resolved]
  - Product dose omission [Unknown]
  - Infection [Unknown]
  - Hypoacusis [Not Recovered/Not Resolved]
  - Hypersensitivity [Recovered/Resolved]
